FAERS Safety Report 7514433-8 (Version None)
Quarter: 2011Q2

REPORT INFORMATION
  Report Type: 
  Country: None (occurrence: None)
  Receive Date: 20110601
  Receipt Date: 20110519
  Transmission Date: 20111010
  Serious: No
  Sender: FDA-Public Use
  Company Number: US-JNJFOC-20110510332

PATIENT
  Sex: Male
  Weight: 113.4 kg

DRUGS (12)
  1. TRIAMTERENE [Concomitant]
     Indication: DIURETIC THERAPY
     Route: 048
     Dates: start: 20040101
  2. BACLOFEN [Concomitant]
     Route: 048
  3. KLOR-CON [Concomitant]
     Indication: MINERAL SUPPLEMENTATION
     Route: 048
  4. FENTANYL [Suspect]
     Indication: PAIN IN EXTREMITY
     Route: 062
     Dates: start: 20100101, end: 20110101
  5. FENTANYL [Suspect]
     Route: 062
     Dates: start: 20100101, end: 20100101
  6. ETODOLAC [Concomitant]
     Indication: ANTIINFLAMMATORY THERAPY
     Route: 048
  7. FENTANYL [Suspect]
     Route: 062
     Dates: start: 20100101, end: 20100101
  8. TIZANIDINE HCL [Concomitant]
     Indication: MUSCLE RELAXANT THERAPY
     Route: 048
  9. PARAFON FORTE [Concomitant]
     Indication: MUSCLE RELAXANT THERAPY
     Route: 048
  10. ENALAPRIL [Concomitant]
     Indication: BLOOD PRESSURE
     Route: 048
  11. ATENOLOL [Concomitant]
     Indication: BLOOD PRESSURE
     Route: 048
  12. FENTANYL [Suspect]
     Indication: RADICULAR PAIN
     Route: 062
     Dates: start: 20100101, end: 20110101

REACTIONS (5)
  - WRONG TECHNIQUE IN DRUG USAGE PROCESS [None]
  - SOMNOLENCE [None]
  - THERAPEUTIC RESPONSE DECREASED [None]
  - FATIGUE [None]
  - POOR QUALITY DRUG ADMINISTERED [None]
